FAERS Safety Report 7099664-6 (Version None)
Quarter: 2010Q4

REPORT INFORMATION
  Report Type: 
  Country: None (occurrence: None)
  Receive Date: 20101112
  Receipt Date: 20101108
  Transmission Date: 20110411
  Serious: Yes (Other)
  Sender: FDA-Public Use
  Company Number: SE-PFIZER INC-2010132299

PATIENT
  Age: 53 Year
  Sex: Male

DRUGS (2)
  1. CAVERJECT [Suspect]
     Indication: ERECTILE DYSFUNCTION
     Dosage: UNK MG, UNK
     Route: 017
     Dates: start: 20101015
  2. CAVERJECT [Suspect]
     Dosage: 20 UG, UNK

REACTIONS (4)
  - NAUSEA [None]
  - PENILE PAIN [None]
  - PENIS DISORDER [None]
  - PRESYNCOPE [None]
